FAERS Safety Report 15029610 (Version 2)
Quarter: 2018Q3

REPORT INFORMATION
  Report Type: Spontaneous
  Country: JP (occurrence: JP)
  Receive Date: 20180619
  Receipt Date: 20180711
  Transmission Date: 20181010
  Serious: Yes (Hospitalization)
  Sender: FDA-Public Use
  Company Number: JP-JNJFOC-20180621902

PATIENT
  Age: 87 Year
  Sex: Female

DRUGS (2)
  1. REMINYL [Suspect]
     Active Substance: GALANTAMINE
     Indication: DEMENTIA ALZHEIMER^S TYPE
     Dosage: PARENTERAL ROUTE
     Route: 051
     Dates: start: 20180616
  2. REMINYL [Suspect]
     Active Substance: GALANTAMINE
     Indication: DEMENTIA ALZHEIMER^S TYPE
     Dosage: ORAL ROUTE
     Route: 048
     Dates: end: 201804

REACTIONS (3)
  - Off label use [Unknown]
  - Product use issue [Unknown]
  - Dysphagia [Unknown]
